FAERS Safety Report 15705504 (Version 1)
Quarter: 2018Q4

REPORT INFORMATION
  Report Type: Spontaneous
  Country: US (occurrence: US)
  Receive Date: 20181210
  Receipt Date: 20181210
  Transmission Date: 20190205
  Serious: No
  Sender: FDA-Public Use
  Company Number: None

PATIENT
  Age: 20 Year
  Sex: Female
  Weight: 65.77 kg

DRUGS (1)
  1. KYLEENA [Suspect]
     Active Substance: LEVONORGESTREL
     Dates: start: 20181103, end: 20181203

REACTIONS (7)
  - Headache [None]
  - Pain [None]
  - Antisocial behaviour [None]
  - Mood altered [None]
  - Muscle spasms [None]
  - Job dissatisfaction [None]
  - Haemorrhage [None]

NARRATIVE: CASE EVENT DATE: 20181130
